FAERS Safety Report 20379149 (Version 2)
Quarter: 2022Q1

REPORT INFORMATION
  Report Type: Spontaneous
  Country: AT (occurrence: AT)
  Receive Date: 20220126
  Receipt Date: 20220207
  Transmission Date: 20220423
  Serious: Yes (Hospitalization)
  Sender: FDA-Public Use
  Company Number: AT-CELGENE-AUT-20220104789

PATIENT
  Age: 73 Year
  Sex: Male

DRUGS (2)
  1. AZACITIDINE [Suspect]
     Active Substance: AZACITIDINE
     Indication: Acute myeloid leukaemia
     Route: 048
  2. AZACITIDINE [Suspect]
     Active Substance: AZACITIDINE
     Route: 048

REACTIONS (6)
  - Leukocytosis [Unknown]
  - Urinary tract infection [Recovered/Resolved]
  - Pyrexia [Unknown]
  - Anaemia [Unknown]
  - Neutropenia [Unknown]
  - Nausea [Unknown]
